FAERS Safety Report 6186468-1 (Version None)
Quarter: 2009Q2

REPORT INFORMATION
  Report Type: 
  Country: None (occurrence: None)
  Receive Date: 20090512
  Receipt Date: 20090428
  Transmission Date: 20091009
  Serious: Yes (Death)
  Sender: FDA-Public Use
  Company Number: TR-RANBAXY-2009RR-23832

PATIENT
  Age: 36 Month
  Sex: Male

DRUGS (2)
  1. ACYCLOVIR SODIUM [Suspect]
     Indication: ENCEPHALITIS HERPES
     Dosage: 1500G/M^2
  2. CEFTRIAXONE [Concomitant]

REACTIONS (4)
  - DISEASE RECURRENCE [None]
  - DRUG INEFFECTIVE [None]
  - ENCEPHALITIS HERPES [None]
  - RESPIRATORY FAILURE [None]
